FAERS Safety Report 5625035-2 (Version None)
Quarter: 2008Q1

REPORT INFORMATION
  Report Type: 
  Country: None (occurrence: None)
  Receive Date: 20080213
  Receipt Date: 20071219
  Transmission Date: 20080703
  Serious: Yes (Other)
  Sender: FDA-Public Use
  Company Number: FR-PFIZER INC-2007106639

PATIENT
  Sex: Female
  Weight: 42 kg

DRUGS (6)
  1. LYRICA [Suspect]
     Indication: PAIN
     Dosage: DAILY DOSE:300MG
     Route: 048
  2. LYRICA [Interacting]
     Indication: NEURALGIA
  3. TEGRETOL [Interacting]
     Indication: NEURALGIA
     Dosage: DAILY DOSE:1600MG
  4. RIVOTRIL [Concomitant]
     Indication: NEURALGIA
  5. LAROXYL [Concomitant]
     Indication: NEURALGIA
     Dosage: DAILY DOSE:50MG
     Route: 048
  6. NEURONTIN [Concomitant]
     Indication: NEURALGIA
     Dosage: DAILY DOSE:1200MG
     Route: 048

REACTIONS (4)
  - CONFUSIONAL STATE [None]
  - DRUG INTERACTION [None]
  - DYSKINESIA [None]
  - HALLUCINATION [None]
